FAERS Safety Report 10303442 (Version 1)
Quarter: 2014Q3

REPORT INFORMATION
  Report Type: Spontaneous
  Country: CA (occurrence: CA)
  Receive Date: 20140714
  Receipt Date: 20140714
  Transmission Date: 20150326
  Serious: Yes (Death)
  Sender: FDA-Public Use
  Company Number: PHHY2014CA085859

PATIENT
  Age: 23 Year
  Sex: Male

DRUGS (6)
  1. GABAPENTIN. [Suspect]
     Active Substance: GABAPENTIN
  2. TEMAZEPAM. [Suspect]
     Active Substance: TEMAZEPAM
  3. AMIODARONE HCL [Suspect]
     Active Substance: AMIODARONE HYDROCHLORIDE
  4. CITALOPRAM [Suspect]
     Active Substance: CITALOPRAM HYDROBROMIDE
  5. PARACETAMOL [Suspect]
     Active Substance: ACETAMINOPHEN
  6. IBUPROFEN. [Suspect]
     Active Substance: IBUPROFEN

REACTIONS (7)
  - Pulseless electrical activity [Fatal]
  - Hypoxic-ischaemic encephalopathy [Fatal]
  - Oedema [Fatal]
  - Vomiting [Fatal]
  - Hernia [Fatal]
  - Apnoea [Fatal]
  - Toxicity to various agents [Fatal]
